FAERS Safety Report 19040366 (Version 2)
Quarter: 2021Q2

REPORT INFORMATION
  Report Type: Spontaneous
  Country: FR (occurrence: FR)
  Receive Date: 20210323
  Receipt Date: 20210408
  Transmission Date: 20210717
  Serious: Yes (Hospitalization)
  Sender: FDA-Public Use
  Company Number: FR-LUPIN PHARMACEUTICALS INC.-2021-03424

PATIENT
  Age: 70 Year
  Sex: Male

DRUGS (9)
  1. TAZOCILLINE [Concomitant]
     Active Substance: PIPERACILLIN SODIUM\TAZOBACTAM SODIUM
     Indication: OSTEONECROSIS
  2. AMOXICILLIN + CLAVULANIC ACID [Concomitant]
     Active Substance: AMOXICILLIN\CLAVULANIC ACID
     Indication: OSTEITIS
     Dosage: UNK, GIVEN FOR TOTAL DURATION OF 6 WEEKS WITH OTHER ANTIBIOTICS
     Route: 065
     Dates: start: 2020
  3. AMOXICILLIN + CLAVULANIC ACID [Concomitant]
     Active Substance: AMOXICILLIN\CLAVULANIC ACID
     Indication: OSTEONECROSIS
  4. TAZOCILLINE [Concomitant]
     Active Substance: PIPERACILLIN SODIUM\TAZOBACTAM SODIUM
     Indication: OSTEITIS
     Dosage: UNK, GIVEN FOR TOTAL DURATION OF 6 WEEKS WITH OTHER ANTIBIOTICS
     Route: 065
     Dates: start: 2020
  5. LINEZOLID. [Suspect]
     Active Substance: LINEZOLID
     Indication: OSTEITIS
     Dosage: UNK, STARTED WITH OTHER ANTIBIOTICS FOR TOTAL DURATION OF 6 WEEKS
     Route: 065
     Dates: start: 2020
  6. LINEZOLID. [Suspect]
     Active Substance: LINEZOLID
     Indication: OSTEONECROSIS
  7. OFLOXACIN. [Concomitant]
     Active Substance: OFLOXACIN
     Indication: OSTEITIS
     Dosage: UNK, GIVEN FOR TOTAL DURATION OF 6 WEEKS WITH OTHER ANTIBIOTICS
     Route: 065
     Dates: start: 2020
  8. OFLOXACIN. [Concomitant]
     Active Substance: OFLOXACIN
     Indication: OSTEONECROSIS
  9. EMTRICITABINE;RILPIVIRINE;TENOFOVIR ALAFENAMIDE [Concomitant]
     Active Substance: EMTRICITABINE\RILPIVIRINE HYDROCHLORIDE\TENOFOVIR ALAFENAMIDE FUMARATE
     Indication: HIV INFECTION
     Dosage: UNK
     Route: 065

REACTIONS (1)
  - Sideroblastic anaemia [Recovered/Resolved]

NARRATIVE: CASE EVENT DATE: 2020
